FAERS Safety Report 6431142-7 (Version None)
Quarter: 2009Q4

REPORT INFORMATION
  Report Type: 
  Country: None (occurrence: None)
  Receive Date: 20091105
  Receipt Date: 20091105
  Transmission Date: 20100525
  Serious: No
  Sender: FDA-Public Use
  Company Number: None

PATIENT
  Sex: Female
  Weight: 73.6 kg

DRUGS (1)
  1. IMIPRAMINE HCL [Suspect]
     Indication: URINARY INCONTINENCE
     Dosage: ONE TABLET (25MG) EVERY BEDTIME ORALLY
     Route: 048
     Dates: start: 20091015

REACTIONS (5)
  - DEPRESSION [None]
  - HALLUCINATION, VISUAL [None]
  - MANIA [None]
  - MOOD SWINGS [None]
  - SOMNAMBULISM [None]
